FAERS Safety Report 8103542-0 (Version None)
Quarter: 2012Q1

REPORT INFORMATION
  Report Type: 
  Country: None (occurrence: None)
  Receive Date: 20120201
  Receipt Date: 20120124
  Transmission Date: 20120608
  Serious: Yes (Other)
  Sender: FDA-Public Use
  Company Number: AR-ROCHE-1033475

PATIENT
  Age: 42 Year
  Sex: Male

DRUGS (2)
  1. PEGASYS [Suspect]
     Indication: HEPATITIS C
     Route: 042
     Dates: start: 20110919, end: 20120110
  2. RIBAVIRIN [Concomitant]
     Indication: HEPATITIS C
     Dates: start: 20110919, end: 20120110

REACTIONS (3)
  - EPISTAXIS [None]
  - THROMBOCYTOPENIA [None]
  - ANAEMIA [None]
